FAERS Safety Report 8405696-5 (Version None)
Quarter: 2012Q2

REPORT INFORMATION
  Report Type: 
  Country: None (occurrence: None)
  Receive Date: 20120604
  Receipt Date: 20120524
  Transmission Date: 20120825
  Serious: Yes (Other)
  Sender: FDA-Public Use
  Company Number: BR-AMGEN-BRASP2012033342

PATIENT
  Age: 52 Year
  Sex: Female
  Weight: 60 kg

DRUGS (2)
  1. ENBREL [Suspect]
     Indication: PSORIASIS
     Dosage: 50 MG, ONCE WEEKLY
     Route: 058
     Dates: start: 20111201
  2. METHOTREXATE [Concomitant]
     Dosage: 20 MG, ONCE WEEKLY

REACTIONS (3)
  - RHINITIS [None]
  - INFLUENZA [None]
  - PRODUCTIVE COUGH [None]
